FAERS Safety Report 23135844 (Version 2)
Quarter: 2023Q4

REPORT INFORMATION
  Report Type: Report from Study
  Country: US (occurrence: US)
  Receive Date: 20231101
  Receipt Date: 20231106
  Transmission Date: 20240110
  Serious: Yes (Hospitalization, Other)
  Sender: FDA-Public Use
  Company Number: US-ABBVIE-5472676

PATIENT
  Age: 65 Year
  Sex: Male
  Weight: 77.11 kg

DRUGS (7)
  1. RINVOQ [Suspect]
     Active Substance: UPADACITINIB
     Indication: Colitis ulcerative
     Dosage: 30 MILLIGRAM
     Route: 048
     Dates: start: 20230714
  2. LOVASTATIN [Concomitant]
     Active Substance: LOVASTATIN
     Indication: Cardiac failure congestive
  3. SPIRONOLACTONE [Concomitant]
     Active Substance: SPIRONOLACTONE
     Indication: Cardiac failure congestive
  4. CLOPIDOGREL [Concomitant]
     Active Substance: CLOPIDOGREL BISULFATE
     Indication: Cardiac failure congestive
  5. LOSARTAN [Concomitant]
     Active Substance: LOSARTAN
     Indication: Cardiac failure congestive
  6. FUROSEMIDE [Concomitant]
     Active Substance: FUROSEMIDE
     Indication: Cardiac failure congestive
  7. DOFETILIDE [Concomitant]
     Active Substance: DOFETILIDE
     Indication: Cardiac failure congestive

REACTIONS (2)
  - Product residue present [Recovering/Resolving]
  - Diarrhoea haemorrhagic [Recovering/Resolving]

NARRATIVE: CASE EVENT DATE: 20230801
